FAERS Safety Report 6927464-3 (Version None)
Quarter: 2010Q3

REPORT INFORMATION
  Report Type: 
  Country: None (occurrence: None)
  Receive Date: 20100817
  Receipt Date: 20100806
  Transmission Date: 20110219
  Serious: Yes (Other)
  Sender: FDA-Public Use
  Company Number: CA-JNJFOC-20100709132

PATIENT
  Sex: Female
  Weight: 70.5 kg

DRUGS (16)
  1. REMICADE [Suspect]
     Indication: BEHCET'S SYNDROME
     Route: 042
  2. REMICADE [Suspect]
     Route: 042
  3. REMICADE [Suspect]
     Indication: CROHN'S DISEASE
     Route: 042
  4. REMICADE [Suspect]
     Route: 042
  5. PRILOSEC [Concomitant]
  6. SYMBICORT [Concomitant]
  7. BRICANYL [Concomitant]
  8. BUSCOPAN [Concomitant]
  9. DOCUSATE [Concomitant]
  10. METHADONE HCL [Concomitant]
  11. DOMPERIDONE [Concomitant]
  12. PREDNISONE [Concomitant]
  13. ZOPICLONE [Concomitant]
  14. TRAZODONE HCL [Concomitant]
  15. PROZAC [Concomitant]
  16. VENTOLIN [Concomitant]

REACTIONS (2)
  - PHARYNGITIS STREPTOCOCCAL [None]
  - THROAT LESION [None]
